FAERS Safety Report 24259395 (Version 17)
Quarter: 2025Q3

REPORT INFORMATION
  Report Type: Spontaneous
  Country: EU (occurrence: EU)
  Receive Date: 20240828
  Receipt Date: 20250804
  Transmission Date: 20251021
  Serious: Yes (Hospitalization, Other)
  Sender: MYLAN
  Company Number: EU-ROCHE-10000054897

PATIENT
  Age: 67 Year
  Sex: Male
  Weight: 82 kg

DRUGS (248)
  1. PREDNISONE [Suspect]
     Active Substance: PREDNISONE
     Indication: Richter^s syndrome
  2. PREDNISONE [Suspect]
     Active Substance: PREDNISONE
     Indication: Diffuse large B-cell lymphoma stage I
     Route: 065
  3. PREDNISONE [Suspect]
     Active Substance: PREDNISONE
     Indication: Diffuse large B-cell lymphoma
     Route: 065
  4. PREDNISONE [Suspect]
     Active Substance: PREDNISONE
  5. PREDNISONE [Suspect]
     Active Substance: PREDNISONE
     Dosage: 100 MG, QD, C1D1-D5, 3-WEEK CYCLE (21 DAYS) (DAY 1), INTRAVENOUS OR ORALLY. DF: TABLET
     Dates: start: 20240725, end: 20240729
  6. PREDNISONE [Suspect]
     Active Substance: PREDNISONE
     Dosage: 100 MG, QD, C1D1-D5, 3-WEEK CYCLE (21 DAYS) (DAY 1), INTRAVENOUS OR ORALLY. DF: TABLET
     Route: 048
     Dates: start: 20240725, end: 20240729
  7. PREDNISONE [Suspect]
     Active Substance: PREDNISONE
     Dosage: 100 MG, QD, C1D1-D5, 3-WEEK CYCLE (21 DAYS) (DAY 1), INTRAVENOUS OR ORALLY. DF: TABLET
     Dates: start: 20240725, end: 20240729
  8. PREDNISONE [Suspect]
     Active Substance: PREDNISONE
     Dosage: 100 MG, QD, C1D1-D5, 3-WEEK CYCLE (21 DAYS) (DAY 1), INTRAVENOUS OR ORALLY. DF: TABLET
     Route: 048
     Dates: start: 20240725, end: 20240729
  9. PREDNISONE [Suspect]
     Active Substance: PREDNISONE
     Dosage: 100 MILLIGRAM, QD
     Route: 048
     Dates: start: 20240829, end: 20240902
  10. PREDNISONE [Suspect]
     Active Substance: PREDNISONE
     Dosage: 100 MILLIGRAM, QD
     Route: 048
     Dates: start: 20240829, end: 20240902
  11. PREDNISONE [Suspect]
     Active Substance: PREDNISONE
     Dosage: 100 MILLIGRAM, QD
     Dates: start: 20240829, end: 20240902
  12. PREDNISONE [Suspect]
     Active Substance: PREDNISONE
     Dosage: 100 MILLIGRAM, QD
     Dates: start: 20240829, end: 20240902
  13. EPCORITAMAB [Suspect]
     Active Substance: EPCORITAMAB
     Indication: Richter^s syndrome
     Route: 058
     Dates: start: 20240726, end: 20240726
  14. EPCORITAMAB [Suspect]
     Active Substance: EPCORITAMAB
     Indication: Diffuse large B-cell lymphoma stage I
     Dates: start: 20240726, end: 20240726
  15. EPCORITAMAB [Suspect]
     Active Substance: EPCORITAMAB
     Indication: Diffuse large B-cell lymphoma
     Route: 058
     Dates: start: 20240726, end: 20240726
  16. EPCORITAMAB [Suspect]
     Active Substance: EPCORITAMAB
     Dates: start: 20240726, end: 20240726
  17. EPCORITAMAB [Suspect]
     Active Substance: EPCORITAMAB
     Dates: start: 20240809, end: 20240809
  18. EPCORITAMAB [Suspect]
     Active Substance: EPCORITAMAB
     Dates: start: 20240809, end: 20240809
  19. EPCORITAMAB [Suspect]
     Active Substance: EPCORITAMAB
     Route: 058
     Dates: start: 20240809, end: 20240809
  20. EPCORITAMAB [Suspect]
     Active Substance: EPCORITAMAB
     Route: 058
     Dates: start: 20240809, end: 20240809
  21. EPCORITAMAB [Suspect]
     Active Substance: EPCORITAMAB
     Dates: start: 20240816, end: 20240816
  22. EPCORITAMAB [Suspect]
     Active Substance: EPCORITAMAB
     Route: 058
     Dates: start: 20240816, end: 20240816
  23. EPCORITAMAB [Suspect]
     Active Substance: EPCORITAMAB
     Route: 058
     Dates: start: 20240816, end: 20240816
  24. EPCORITAMAB [Suspect]
     Active Substance: EPCORITAMAB
     Dates: start: 20240816, end: 20240816
  25. EPCORITAMAB [Suspect]
     Active Substance: EPCORITAMAB
     Route: 058
     Dates: start: 20240823, end: 20240830
  26. EPCORITAMAB [Suspect]
     Active Substance: EPCORITAMAB
     Route: 058
     Dates: start: 20240823, end: 20240830
  27. EPCORITAMAB [Suspect]
     Active Substance: EPCORITAMAB
     Dates: start: 20240823, end: 20240830
  28. EPCORITAMAB [Suspect]
     Active Substance: EPCORITAMAB
     Dates: start: 20240823, end: 20240830
  29. EPCORITAMAB [Suspect]
     Active Substance: EPCORITAMAB
     Route: 058
  30. EPCORITAMAB [Suspect]
     Active Substance: EPCORITAMAB
     Route: 058
  31. EPCORITAMAB [Suspect]
     Active Substance: EPCORITAMAB
  32. EPCORITAMAB [Suspect]
     Active Substance: EPCORITAMAB
  33. EPCORITAMAB [Suspect]
     Active Substance: EPCORITAMAB
     Route: 058
  34. EPCORITAMAB [Suspect]
     Active Substance: EPCORITAMAB
  35. EPCORITAMAB [Suspect]
     Active Substance: EPCORITAMAB
  36. EPCORITAMAB [Suspect]
     Active Substance: EPCORITAMAB
     Route: 058
  37. VINCRISTINE [Suspect]
     Active Substance: VINCRISTINE
     Indication: Richter^s syndrome
     Dates: start: 20240725, end: 20240725
  38. VINCRISTINE [Suspect]
     Active Substance: VINCRISTINE
     Indication: Diffuse large B-cell lymphoma stage I
     Dates: start: 20240725, end: 20240725
  39. VINCRISTINE [Suspect]
     Active Substance: VINCRISTINE
     Indication: Diffuse large B-cell lymphoma
     Route: 042
     Dates: start: 20240725, end: 20240725
  40. VINCRISTINE [Suspect]
     Active Substance: VINCRISTINE
     Route: 042
     Dates: start: 20240725, end: 20240725
  41. VINCRISTINE [Suspect]
     Active Substance: VINCRISTINE
     Route: 042
     Dates: start: 20240725, end: 20240829
  42. VINCRISTINE [Suspect]
     Active Substance: VINCRISTINE
     Dates: start: 20240725, end: 20240829
  43. VINCRISTINE [Suspect]
     Active Substance: VINCRISTINE
     Dates: start: 20240725, end: 20240829
  44. VINCRISTINE [Suspect]
     Active Substance: VINCRISTINE
     Route: 042
     Dates: start: 20240725, end: 20240829
  45. VINCRISTINE [Suspect]
     Active Substance: VINCRISTINE
  46. VINCRISTINE [Suspect]
     Active Substance: VINCRISTINE
  47. VINCRISTINE [Suspect]
     Active Substance: VINCRISTINE
     Route: 042
  48. VINCRISTINE [Suspect]
     Active Substance: VINCRISTINE
     Route: 042
  49. VINCRISTINE [Suspect]
     Active Substance: VINCRISTINE
     Route: 042
  50. VINCRISTINE [Suspect]
     Active Substance: VINCRISTINE
  51. VINCRISTINE [Suspect]
     Active Substance: VINCRISTINE
  52. VINCRISTINE [Suspect]
     Active Substance: VINCRISTINE
     Route: 042
  53. CYCLOPHOSPHAMIDE [Suspect]
     Active Substance: CYCLOPHOSPHAMIDE
     Indication: Richter^s syndrome
     Route: 042
     Dates: start: 20240725, end: 20240725
  54. CYCLOPHOSPHAMIDE [Suspect]
     Active Substance: CYCLOPHOSPHAMIDE
     Indication: Diffuse large B-cell lymphoma stage I
     Route: 042
     Dates: start: 20240725, end: 20240725
  55. CYCLOPHOSPHAMIDE [Suspect]
     Active Substance: CYCLOPHOSPHAMIDE
     Indication: Diffuse large B-cell lymphoma
     Dates: start: 20240725, end: 20240725
  56. CYCLOPHOSPHAMIDE [Suspect]
     Active Substance: CYCLOPHOSPHAMIDE
     Dates: start: 20240725, end: 20240725
  57. CYCLOPHOSPHAMIDE [Suspect]
     Active Substance: CYCLOPHOSPHAMIDE
     Route: 042
     Dates: start: 20240725, end: 20240829
  58. CYCLOPHOSPHAMIDE [Suspect]
     Active Substance: CYCLOPHOSPHAMIDE
     Route: 042
     Dates: start: 20240725, end: 20240829
  59. CYCLOPHOSPHAMIDE [Suspect]
     Active Substance: CYCLOPHOSPHAMIDE
     Dates: start: 20240725, end: 20240829
  60. CYCLOPHOSPHAMIDE [Suspect]
     Active Substance: CYCLOPHOSPHAMIDE
     Dates: start: 20240725, end: 20240829
  61. CYCLOPHOSPHAMIDE [Suspect]
     Active Substance: CYCLOPHOSPHAMIDE
  62. CYCLOPHOSPHAMIDE [Suspect]
     Active Substance: CYCLOPHOSPHAMIDE
  63. CYCLOPHOSPHAMIDE [Suspect]
     Active Substance: CYCLOPHOSPHAMIDE
     Route: 042
  64. CYCLOPHOSPHAMIDE [Suspect]
     Active Substance: CYCLOPHOSPHAMIDE
     Route: 042
  65. CYCLOPHOSPHAMIDE [Suspect]
     Active Substance: CYCLOPHOSPHAMIDE
  66. CYCLOPHOSPHAMIDE [Suspect]
     Active Substance: CYCLOPHOSPHAMIDE
  67. CYCLOPHOSPHAMIDE [Suspect]
     Active Substance: CYCLOPHOSPHAMIDE
     Route: 065
  68. CYCLOPHOSPHAMIDE [Suspect]
     Active Substance: CYCLOPHOSPHAMIDE
     Route: 065
  69. DOXORUBICIN HYDROCHLORIDE [Suspect]
     Active Substance: DOXORUBICIN HYDROCHLORIDE
     Indication: Richter^s syndrome
     Dates: start: 20240725, end: 20240725
  70. DOXORUBICIN HYDROCHLORIDE [Suspect]
     Active Substance: DOXORUBICIN HYDROCHLORIDE
     Indication: Diffuse large B-cell lymphoma stage I
     Dates: start: 20240725, end: 20240725
  71. DOXORUBICIN HYDROCHLORIDE [Suspect]
     Active Substance: DOXORUBICIN HYDROCHLORIDE
     Indication: Diffuse large B-cell lymphoma
     Route: 042
     Dates: start: 20240725, end: 20240725
  72. DOXORUBICIN HYDROCHLORIDE [Suspect]
     Active Substance: DOXORUBICIN HYDROCHLORIDE
     Route: 042
     Dates: start: 20240725, end: 20240725
  73. DOXORUBICIN HYDROCHLORIDE [Suspect]
     Active Substance: DOXORUBICIN HYDROCHLORIDE
     Route: 042
     Dates: start: 20240725, end: 20240829
  74. DOXORUBICIN HYDROCHLORIDE [Suspect]
     Active Substance: DOXORUBICIN HYDROCHLORIDE
     Dates: start: 20240725, end: 20240829
  75. DOXORUBICIN HYDROCHLORIDE [Suspect]
     Active Substance: DOXORUBICIN HYDROCHLORIDE
     Dates: start: 20240725, end: 20240829
  76. DOXORUBICIN HYDROCHLORIDE [Suspect]
     Active Substance: DOXORUBICIN HYDROCHLORIDE
     Route: 042
     Dates: start: 20240725, end: 20240829
  77. DOXORUBICIN HYDROCHLORIDE [Suspect]
     Active Substance: DOXORUBICIN HYDROCHLORIDE
  78. DOXORUBICIN HYDROCHLORIDE [Suspect]
     Active Substance: DOXORUBICIN HYDROCHLORIDE
  79. DOXORUBICIN HYDROCHLORIDE [Suspect]
     Active Substance: DOXORUBICIN HYDROCHLORIDE
     Route: 042
  80. DOXORUBICIN HYDROCHLORIDE [Suspect]
     Active Substance: DOXORUBICIN HYDROCHLORIDE
     Route: 042
  81. DOXORUBICIN HYDROCHLORIDE [Suspect]
     Active Substance: DOXORUBICIN HYDROCHLORIDE
     Route: 065
  82. DOXORUBICIN HYDROCHLORIDE [Suspect]
     Active Substance: DOXORUBICIN HYDROCHLORIDE
  83. DOXORUBICIN HYDROCHLORIDE [Suspect]
     Active Substance: DOXORUBICIN HYDROCHLORIDE
  84. DOXORUBICIN HYDROCHLORIDE [Suspect]
     Active Substance: DOXORUBICIN HYDROCHLORIDE
     Route: 065
  85. RITUXIMAB [Suspect]
     Active Substance: RITUXIMAB
     Indication: Richter^s syndrome
     Route: 042
     Dates: start: 20240725, end: 20240725
  86. RITUXIMAB [Suspect]
     Active Substance: RITUXIMAB
     Indication: Diffuse large B-cell lymphoma stage I
     Dates: start: 20240725, end: 20240725
  87. RITUXIMAB [Suspect]
     Active Substance: RITUXIMAB
     Indication: Diffuse large B-cell lymphoma
     Dates: start: 20240725, end: 20240725
  88. RITUXIMAB [Suspect]
     Active Substance: RITUXIMAB
     Route: 042
     Dates: start: 20240725, end: 20240725
  89. RITUXIMAB [Suspect]
     Active Substance: RITUXIMAB
     Route: 042
     Dates: start: 20240725, end: 20240829
  90. RITUXIMAB [Suspect]
     Active Substance: RITUXIMAB
     Dates: start: 20240725, end: 20240829
  91. RITUXIMAB [Suspect]
     Active Substance: RITUXIMAB
     Dates: start: 20240725, end: 20240829
  92. RITUXIMAB [Suspect]
     Active Substance: RITUXIMAB
     Route: 042
     Dates: start: 20240725, end: 20240829
  93. RITUXIMAB [Suspect]
     Active Substance: RITUXIMAB
     Route: 042
  94. RITUXIMAB [Suspect]
     Active Substance: RITUXIMAB
  95. RITUXIMAB [Suspect]
     Active Substance: RITUXIMAB
  96. RITUXIMAB [Suspect]
     Active Substance: RITUXIMAB
     Route: 042
  97. RITUXIMAB [Suspect]
     Active Substance: RITUXIMAB
     Route: 065
  98. RITUXIMAB [Suspect]
     Active Substance: RITUXIMAB
  99. RITUXIMAB [Suspect]
     Active Substance: RITUXIMAB
  100. RITUXIMAB [Suspect]
     Active Substance: RITUXIMAB
     Route: 065
  101. DOXORUBICIN [Suspect]
     Active Substance: DOXORUBICIN
     Indication: Diffuse large B-cell lymphoma stage I
  102. DOXORUBICIN [Suspect]
     Active Substance: DOXORUBICIN
     Route: 042
  103. DOXORUBICIN [Suspect]
     Active Substance: DOXORUBICIN
     Route: 042
  104. DOXORUBICIN [Suspect]
     Active Substance: DOXORUBICIN
  105. KARDEGIC [Concomitant]
     Active Substance: ASPIRIN DL-LYSINE
  106. KARDEGIC [Concomitant]
     Active Substance: ASPIRIN DL-LYSINE
     Route: 065
  107. KARDEGIC [Concomitant]
     Active Substance: ASPIRIN DL-LYSINE
     Route: 065
  108. KARDEGIC [Concomitant]
     Active Substance: ASPIRIN DL-LYSINE
  109. METFORMIN HYDROCHLORIDE [Concomitant]
     Active Substance: METFORMIN HYDROCHLORIDE
     Indication: Product used for unknown indication
  110. METFORMIN HYDROCHLORIDE [Concomitant]
     Active Substance: METFORMIN HYDROCHLORIDE
     Route: 065
  111. METFORMIN HYDROCHLORIDE [Concomitant]
     Active Substance: METFORMIN HYDROCHLORIDE
     Route: 065
  112. METFORMIN HYDROCHLORIDE [Concomitant]
     Active Substance: METFORMIN HYDROCHLORIDE
  113. Bi preterax [Concomitant]
     Route: 065
  114. Bi preterax [Concomitant]
  115. Bi preterax [Concomitant]
  116. Bi preterax [Concomitant]
     Route: 065
  117. Bi preterax [Concomitant]
     Route: 065
  118. Bi preterax [Concomitant]
  119. Bi preterax [Concomitant]
  120. Bi preterax [Concomitant]
     Route: 065
  121. LIPTRUZET [Concomitant]
     Active Substance: ATORVASTATIN CALCIUM\EZETIMIBE
  122. LIPTRUZET [Concomitant]
     Active Substance: ATORVASTATIN CALCIUM\EZETIMIBE
     Route: 065
  123. LIPTRUZET [Concomitant]
     Active Substance: ATORVASTATIN CALCIUM\EZETIMIBE
     Route: 065
  124. LIPTRUZET [Concomitant]
     Active Substance: ATORVASTATIN CALCIUM\EZETIMIBE
  125. VALACYCLOVIR HYDROCHLORIDE [Concomitant]
     Active Substance: VALACYCLOVIR HYDROCHLORIDE
     Route: 065
  126. VALACYCLOVIR HYDROCHLORIDE [Concomitant]
     Active Substance: VALACYCLOVIR HYDROCHLORIDE
  127. VALACYCLOVIR HYDROCHLORIDE [Concomitant]
     Active Substance: VALACYCLOVIR HYDROCHLORIDE
  128. VALACYCLOVIR HYDROCHLORIDE [Concomitant]
     Active Substance: VALACYCLOVIR HYDROCHLORIDE
     Route: 065
  129. VALACYCLOVIR HYDROCHLORIDE [Concomitant]
     Active Substance: VALACYCLOVIR HYDROCHLORIDE
     Route: 065
  130. VALACYCLOVIR HYDROCHLORIDE [Concomitant]
     Active Substance: VALACYCLOVIR HYDROCHLORIDE
  131. VALACYCLOVIR HYDROCHLORIDE [Concomitant]
     Active Substance: VALACYCLOVIR HYDROCHLORIDE
  132. VALACYCLOVIR HYDROCHLORIDE [Concomitant]
     Active Substance: VALACYCLOVIR HYDROCHLORIDE
     Route: 065
  133. ALLOPURINOL [Concomitant]
     Active Substance: ALLOPURINOL
     Indication: Product used for unknown indication
  134. ALLOPURINOL [Concomitant]
     Active Substance: ALLOPURINOL
     Route: 065
  135. ALLOPURINOL [Concomitant]
     Active Substance: ALLOPURINOL
     Route: 065
  136. ALLOPURINOL [Concomitant]
     Active Substance: ALLOPURINOL
  137. BACTRIM [Concomitant]
     Active Substance: SULFAMETHOXAZOLE\TRIMETHOPRIM
     Indication: Product used for unknown indication
  138. BACTRIM [Concomitant]
     Active Substance: SULFAMETHOXAZOLE\TRIMETHOPRIM
     Route: 065
  139. BACTRIM [Concomitant]
     Active Substance: SULFAMETHOXAZOLE\TRIMETHOPRIM
     Route: 065
  140. BACTRIM [Concomitant]
     Active Substance: SULFAMETHOXAZOLE\TRIMETHOPRIM
  141. OMEPRAZOLE [Concomitant]
     Active Substance: OMEPRAZOLE
     Indication: Product used for unknown indication
     Dates: start: 2018, end: 20240824
  142. OMEPRAZOLE [Concomitant]
     Active Substance: OMEPRAZOLE
     Route: 065
     Dates: start: 2018, end: 20240824
  143. OMEPRAZOLE [Concomitant]
     Active Substance: OMEPRAZOLE
     Route: 065
     Dates: start: 2018, end: 20240824
  144. OMEPRAZOLE [Concomitant]
     Active Substance: OMEPRAZOLE
     Dates: start: 2018, end: 20240824
  145. LERCANIDIPINE [Concomitant]
     Active Substance: LERCANIDIPINE
     Indication: Product used for unknown indication
     Route: 065
  146. LERCANIDIPINE [Concomitant]
     Active Substance: LERCANIDIPINE
  147. LERCANIDIPINE [Concomitant]
     Active Substance: LERCANIDIPINE
  148. LERCANIDIPINE [Concomitant]
     Active Substance: LERCANIDIPINE
     Route: 065
  149. LERCANIDIPINE [Concomitant]
     Active Substance: LERCANIDIPINE
     Route: 065
     Dates: start: 2023, end: 20240815
  150. LERCANIDIPINE [Concomitant]
     Active Substance: LERCANIDIPINE
     Dates: start: 2023, end: 20240815
  151. LERCANIDIPINE [Concomitant]
     Active Substance: LERCANIDIPINE
     Dates: start: 2023, end: 20240815
  152. LERCANIDIPINE [Concomitant]
     Active Substance: LERCANIDIPINE
     Route: 065
     Dates: start: 2023, end: 20240815
  153. NEBIVOLOL [Concomitant]
     Active Substance: NEBIVOLOL
     Indication: Product used for unknown indication
  154. NEBIVOLOL [Concomitant]
     Active Substance: NEBIVOLOL
     Route: 065
  155. NEBIVOLOL [Concomitant]
     Active Substance: NEBIVOLOL
     Route: 065
  156. NEBIVOLOL [Concomitant]
     Active Substance: NEBIVOLOL
  157. PREDNISONE [Concomitant]
     Active Substance: PREDNISONE
     Route: 065
  158. PREDNISONE [Concomitant]
     Active Substance: PREDNISONE
  159. PREDNISONE [Concomitant]
     Active Substance: PREDNISONE
  160. PREDNISONE [Concomitant]
     Active Substance: PREDNISONE
     Route: 065
  161. PREDNISONE [Concomitant]
     Active Substance: PREDNISONE
     Route: 048
     Dates: start: 20240809, end: 20240812
  162. PREDNISONE [Concomitant]
     Active Substance: PREDNISONE
     Dates: start: 20240809, end: 20240812
  163. PREDNISONE [Concomitant]
     Active Substance: PREDNISONE
     Dates: start: 20240809, end: 20240812
  164. PREDNISONE [Concomitant]
     Active Substance: PREDNISONE
     Route: 048
     Dates: start: 20240809, end: 20240812
  165. MORPHINE [Concomitant]
     Active Substance: MORPHINE
     Indication: Product used for unknown indication
     Dates: start: 20240806, end: 20240811
  166. MORPHINE [Concomitant]
     Active Substance: MORPHINE
     Route: 065
     Dates: start: 20240806, end: 20240811
  167. MORPHINE [Concomitant]
     Active Substance: MORPHINE
     Route: 065
     Dates: start: 20240806, end: 20240811
  168. MORPHINE [Concomitant]
     Active Substance: MORPHINE
     Dates: start: 20240806, end: 20240811
  169. EFFERALGAN [Concomitant]
     Active Substance: ACETAMINOPHEN
     Indication: Premedication
     Route: 048
     Dates: start: 20240726, end: 20240726
  170. EFFERALGAN [Concomitant]
     Active Substance: ACETAMINOPHEN
     Dates: start: 20240726, end: 20240726
  171. EFFERALGAN [Concomitant]
     Active Substance: ACETAMINOPHEN
     Dates: start: 20240726, end: 20240726
  172. EFFERALGAN [Concomitant]
     Active Substance: ACETAMINOPHEN
     Route: 048
     Dates: start: 20240726, end: 20240726
  173. EFFERALGAN [Concomitant]
     Active Substance: ACETAMINOPHEN
     Route: 048
     Dates: start: 20240816, end: 20240816
  174. EFFERALGAN [Concomitant]
     Active Substance: ACETAMINOPHEN
     Dates: start: 20240816, end: 20240816
  175. EFFERALGAN [Concomitant]
     Active Substance: ACETAMINOPHEN
     Dates: start: 20240816, end: 20240816
  176. EFFERALGAN [Concomitant]
     Active Substance: ACETAMINOPHEN
     Route: 048
     Dates: start: 20240816, end: 20240816
  177. EFFERALGAN [Concomitant]
     Active Substance: ACETAMINOPHEN
     Route: 048
     Dates: start: 20240809, end: 20240809
  178. EFFERALGAN [Concomitant]
     Active Substance: ACETAMINOPHEN
     Route: 048
     Dates: start: 20240809, end: 20240809
  179. EFFERALGAN [Concomitant]
     Active Substance: ACETAMINOPHEN
     Dates: start: 20240809, end: 20240809
  180. EFFERALGAN [Concomitant]
     Active Substance: ACETAMINOPHEN
     Dates: start: 20240809, end: 20240809
  181. DAPTOMYCIN [Concomitant]
     Active Substance: DAPTOMYCIN
     Indication: Product used for unknown indication
     Dates: start: 20240802, end: 20240809
  182. DAPTOMYCIN [Concomitant]
     Active Substance: DAPTOMYCIN
     Route: 065
     Dates: start: 20240802, end: 20240809
  183. DAPTOMYCIN [Concomitant]
     Active Substance: DAPTOMYCIN
     Route: 065
     Dates: start: 20240802, end: 20240809
  184. DAPTOMYCIN [Concomitant]
     Active Substance: DAPTOMYCIN
     Dates: start: 20240802, end: 20240809
  185. PANTOPRAZOLE [Concomitant]
     Active Substance: PANTOPRAZOLE
     Indication: Product used for unknown indication
     Dates: start: 20240808, end: 20240812
  186. PANTOPRAZOLE [Concomitant]
     Active Substance: PANTOPRAZOLE
     Route: 065
     Dates: start: 20240808, end: 20240812
  187. PANTOPRAZOLE [Concomitant]
     Active Substance: PANTOPRAZOLE
     Route: 065
     Dates: start: 20240808, end: 20240812
  188. PANTOPRAZOLE [Concomitant]
     Active Substance: PANTOPRAZOLE
     Dates: start: 20240808, end: 20240812
  189. POLARAMINE [Concomitant]
     Active Substance: DEXCHLORPHENIRAMINE MALEATE
     Indication: Premedication
     Dates: start: 20240809, end: 20240809
  190. POLARAMINE [Concomitant]
     Active Substance: DEXCHLORPHENIRAMINE MALEATE
     Dates: start: 20240809, end: 20240809
  191. POLARAMINE [Concomitant]
     Active Substance: DEXCHLORPHENIRAMINE MALEATE
     Route: 042
     Dates: start: 20240809, end: 20240809
  192. POLARAMINE [Concomitant]
     Active Substance: DEXCHLORPHENIRAMINE MALEATE
     Route: 042
     Dates: start: 20240809, end: 20240809
  193. POLARAMINE [Concomitant]
     Active Substance: DEXCHLORPHENIRAMINE MALEATE
     Dates: start: 20240816, end: 20240816
  194. POLARAMINE [Concomitant]
     Active Substance: DEXCHLORPHENIRAMINE MALEATE
     Dates: start: 20240816, end: 20240816
  195. POLARAMINE [Concomitant]
     Active Substance: DEXCHLORPHENIRAMINE MALEATE
     Route: 042
     Dates: start: 20240816, end: 20240816
  196. POLARAMINE [Concomitant]
     Active Substance: DEXCHLORPHENIRAMINE MALEATE
     Route: 042
     Dates: start: 20240816, end: 20240816
  197. POLARAMINE [Concomitant]
     Active Substance: DEXCHLORPHENIRAMINE MALEATE
     Indication: Premedication
     Dates: start: 20240726, end: 20240816
  198. POLARAMINE [Concomitant]
     Active Substance: DEXCHLORPHENIRAMINE MALEATE
     Route: 048
     Dates: start: 20240726, end: 20240816
  199. POLARAMINE [Concomitant]
     Active Substance: DEXCHLORPHENIRAMINE MALEATE
     Route: 048
     Dates: start: 20240726, end: 20240816
  200. POLARAMINE [Concomitant]
     Active Substance: DEXCHLORPHENIRAMINE MALEATE
     Dates: start: 20240726, end: 20240816
  201. CEFTRIAXONE [Concomitant]
     Active Substance: CEFTRIAXONE
     Route: 065
     Dates: start: 20240804, end: 20240814
  202. CEFTRIAXONE [Concomitant]
     Active Substance: CEFTRIAXONE
     Dates: start: 20240804, end: 20240814
  203. CEFTRIAXONE [Concomitant]
     Active Substance: CEFTRIAXONE
     Dates: start: 20240804, end: 20240814
  204. CEFTRIAXONE [Concomitant]
     Active Substance: CEFTRIAXONE
     Route: 065
     Dates: start: 20240804, end: 20240814
  205. CEFTRIAXONE [Concomitant]
     Active Substance: CEFTRIAXONE
     Route: 065
     Dates: start: 20240909, end: 20240915
  206. CEFTRIAXONE [Concomitant]
     Active Substance: CEFTRIAXONE
     Dates: start: 20240909, end: 20240915
  207. CEFTRIAXONE [Concomitant]
     Active Substance: CEFTRIAXONE
     Dates: start: 20240909, end: 20240915
  208. CEFTRIAXONE [Concomitant]
     Active Substance: CEFTRIAXONE
     Route: 065
     Dates: start: 20240909, end: 20240915
  209. PIPERACILLIN SODIUM\TAZOBACTAM SODIUM [Concomitant]
     Active Substance: PIPERACILLIN SODIUM\TAZOBACTAM SODIUM
     Indication: Sepsis
     Dates: start: 20240801, end: 20240803
  210. PIPERACILLIN SODIUM\TAZOBACTAM SODIUM [Concomitant]
     Active Substance: PIPERACILLIN SODIUM\TAZOBACTAM SODIUM
     Route: 065
     Dates: start: 20240801, end: 20240803
  211. PIPERACILLIN SODIUM\TAZOBACTAM SODIUM [Concomitant]
     Active Substance: PIPERACILLIN SODIUM\TAZOBACTAM SODIUM
     Route: 065
     Dates: start: 20240801, end: 20240803
  212. PIPERACILLIN SODIUM\TAZOBACTAM SODIUM [Concomitant]
     Active Substance: PIPERACILLIN SODIUM\TAZOBACTAM SODIUM
     Dates: start: 20240801, end: 20240803
  213. SKENAN [Concomitant]
     Active Substance: MORPHINE SULFATE
     Indication: Product used for unknown indication
  214. SKENAN [Concomitant]
     Active Substance: MORPHINE SULFATE
     Route: 065
  215. SKENAN [Concomitant]
     Active Substance: MORPHINE SULFATE
     Route: 065
  216. SKENAN [Concomitant]
     Active Substance: MORPHINE SULFATE
  217. ERYTHROPOIETIN [Concomitant]
     Active Substance: ERYTHROPOIETIN
  218. ERYTHROPOIETIN [Concomitant]
     Active Substance: ERYTHROPOIETIN
     Route: 065
  219. ERYTHROPOIETIN [Concomitant]
     Active Substance: ERYTHROPOIETIN
     Route: 065
  220. ERYTHROPOIETIN [Concomitant]
     Active Substance: ERYTHROPOIETIN
  221. DEXAMETHASONE [Concomitant]
     Active Substance: DEXAMETHASONE
     Route: 048
     Dates: start: 20240817, end: 20240819
  222. DEXAMETHASONE [Concomitant]
     Active Substance: DEXAMETHASONE
     Dates: start: 20240817, end: 20240819
  223. DEXAMETHASONE [Concomitant]
     Active Substance: DEXAMETHASONE
     Dates: start: 20240817, end: 20240819
  224. DEXAMETHASONE [Concomitant]
     Active Substance: DEXAMETHASONE
     Route: 048
     Dates: start: 20240817, end: 20240819
  225. DEXAMETHASONE [Concomitant]
     Active Substance: DEXAMETHASONE
     Route: 048
     Dates: start: 20240824, end: 20240826
  226. DEXAMETHASONE [Concomitant]
     Active Substance: DEXAMETHASONE
     Dates: start: 20240824, end: 20240826
  227. DEXAMETHASONE [Concomitant]
     Active Substance: DEXAMETHASONE
     Dates: start: 20240824, end: 20240826
  228. DEXAMETHASONE [Concomitant]
     Active Substance: DEXAMETHASONE
     Route: 048
     Dates: start: 20240824, end: 20240826
  229. FILGRASTIM [Concomitant]
     Active Substance: FILGRASTIM
     Indication: Product used for unknown indication
  230. FILGRASTIM [Concomitant]
     Active Substance: FILGRASTIM
     Route: 065
  231. FILGRASTIM [Concomitant]
     Active Substance: FILGRASTIM
     Route: 065
  232. FILGRASTIM [Concomitant]
     Active Substance: FILGRASTIM
  233. LANSOPRAZOLE [Concomitant]
     Active Substance: LANSOPRAZOLE
     Indication: Product used for unknown indication
  234. LANSOPRAZOLE [Concomitant]
     Active Substance: LANSOPRAZOLE
     Route: 065
  235. LANSOPRAZOLE [Concomitant]
     Active Substance: LANSOPRAZOLE
     Route: 065
  236. LANSOPRAZOLE [Concomitant]
     Active Substance: LANSOPRAZOLE
  237. PERINDOPRIL [Concomitant]
     Active Substance: PERINDOPRIL
     Indication: Product used for unknown indication
  238. PERINDOPRIL [Concomitant]
     Active Substance: PERINDOPRIL
     Route: 065
  239. PERINDOPRIL [Concomitant]
     Active Substance: PERINDOPRIL
     Route: 065
  240. PERINDOPRIL [Concomitant]
     Active Substance: PERINDOPRIL
  241. DEXAMETHASONE [Concomitant]
     Active Substance: DEXAMETHASONE
     Dates: start: 20240816, end: 20240826
  242. DEXAMETHASONE [Concomitant]
     Active Substance: DEXAMETHASONE
     Dates: start: 20240816, end: 20240826
  243. DEXAMETHASONE [Concomitant]
     Active Substance: DEXAMETHASONE
     Route: 042
     Dates: start: 20240816, end: 20240826
  244. DEXAMETHASONE [Concomitant]
     Active Substance: DEXAMETHASONE
     Route: 042
     Dates: start: 20240816, end: 20240826
  245. DEXAMETHASONE [Concomitant]
     Active Substance: DEXAMETHASONE
  246. DEXAMETHASONE [Concomitant]
     Active Substance: DEXAMETHASONE
  247. DEXAMETHASONE [Concomitant]
     Active Substance: DEXAMETHASONE
     Route: 065
  248. DEXAMETHASONE [Concomitant]
     Active Substance: DEXAMETHASONE
     Route: 065

REACTIONS (9)
  - Febrile bone marrow aplasia [Recovered/Resolved]
  - Thrombocytopenia [Unknown]
  - Neutropenia [Unknown]
  - Febrile neutropenia [Recovered/Resolved]
  - Escherichia sepsis [Unknown]
  - Gastric ulcer [Unknown]
  - Neutrophil count decreased [Recovered/Resolved]
  - Staphylococcal bacteraemia [Unknown]
  - Oesophagitis [Unknown]

NARRATIVE: CASE EVENT DATE: 20240801
